FAERS Safety Report 12072860 (Version 1)
Quarter: 2016Q1

REPORT INFORMATION
  Report Type: Spontaneous
  Country: GB (occurrence: GB)
  Receive Date: 20160212
  Receipt Date: 20160212
  Transmission Date: 20160526
  Serious: Yes (Other)
  Sender: FDA-Public Use
  Company Number: GB-IPCA LABORATORIES LIMITED-IPC201602-000048

PATIENT
  Age: 26 Year
  Sex: Male

DRUGS (3)
  1. GENTAMYCIN [Suspect]
     Active Substance: GENTAMICIN
  2. FUROSEMIDE. [Suspect]
     Active Substance: FUROSEMIDE
  3. LISINOPRIL. [Suspect]
     Active Substance: LISINOPRIL

REACTIONS (1)
  - Acute kidney injury [Unknown]
